FAERS Safety Report 20163253 (Version 1)
Quarter: 2021Q4

REPORT INFORMATION
  Report Type: Spontaneous
  Country: US (occurrence: US)
  Receive Date: 20211209
  Receipt Date: 20211209
  Transmission Date: 20220304
  Serious: No
  Sender: FDA-Public Use
  Company Number: US-ELI_LILLY_AND_COMPANY-US202112003599

PATIENT
  Sex: Female

DRUGS (1)
  1. VERZENIO [Suspect]
     Active Substance: ABEMACICLIB
     Indication: Bone cancer metastatic
     Dosage: 150 MG, BID
     Route: 065
     Dates: start: 20211112

REACTIONS (3)
  - Diarrhoea [Unknown]
  - Fatigue [Unknown]
  - Off label use [Unknown]
